FAERS Safety Report 8811325 (Version 1)
Quarter: 2012Q4

REPORT INFORMATION
  Report Type: 
  Country: IT (occurrence: IT)
  Receive Date: 20120927
  Receipt Date: 20120927
  Transmission Date: 20130627
  Serious: Yes (Other)
  Sender: FDA-Public Use
  Company Number: IT-ELI_LILLY_AND_COMPANY-IT201209004668

PATIENT
  Sex: Male

DRUGS (1)
  1. ZYPADHERA [Suspect]

REACTIONS (2)
  - Papilloedema [Unknown]
  - Visual impairment [Unknown]
